FAERS Safety Report 13373801 (Version 1)
Quarter: 2017Q1

REPORT INFORMATION
  Report Type: Spontaneous
  Country: US (occurrence: US)
  Receive Date: 20170327
  Receipt Date: 20170327
  Transmission Date: 20170429
  Serious: Yes (Other)
  Sender: FDA-Public Use
  Company Number: None

PATIENT
  Age: 65 Year
  Sex: Female
  Weight: 95.4 kg

DRUGS (2)
  1. AMOX-CLAV 875 MG TABLETS [Suspect]
     Active Substance: AMOXICILLIN\CLAVULANATE POTASSIUM
     Indication: SINUSITIS
     Dosage: ?          QUANTITY:20 TABLET(S);?
     Route: 048
     Dates: start: 20170323, end: 20170325
  2. AMOX-CLAV 875 MG TABLETS [Suspect]
     Active Substance: AMOXICILLIN\CLAVULANATE POTASSIUM
     Indication: LOWER RESPIRATORY TRACT INFECTION
     Dosage: ?          QUANTITY:20 TABLET(S);?
     Route: 048
     Dates: start: 20170323, end: 20170325

REACTIONS (5)
  - Muscle spasms [None]
  - Vomiting [None]
  - Abdominal pain upper [None]
  - Diarrhoea [None]
  - Feeling abnormal [None]

NARRATIVE: CASE EVENT DATE: 20170326
